FAERS Safety Report 24595354 (Version 1)
Quarter: 2024Q4

REPORT INFORMATION
  Report Type: Spontaneous
  Country: US (occurrence: US)
  Receive Date: 20241109
  Receipt Date: 20241109
  Transmission Date: 20250115
  Serious: No
  Sender: ROCHE
  Company Number: US-ROCHE-10000127064

PATIENT
  Age: 5 Year
  Sex: Male

DRUGS (1)
  1. NUTROPIN AQ NUSPIN 5 [Suspect]
     Active Substance: SOMATROPIN
     Indication: Phelan-McDermid syndrome
     Route: 058

REACTIONS (2)
  - Off label use [Unknown]
  - No adverse event [Unknown]
